FAERS Safety Report 22991384 (Version 3)
Quarter: 2023Q4

REPORT INFORMATION
  Report Type: Spontaneous
  Country: JP (occurrence: JP)
  Receive Date: 20230927
  Receipt Date: 20231220
  Transmission Date: 20240109
  Serious: Yes (Hospitalization, Other)
  Sender: FDA-Public Use
  Company Number: JP-ASTELLAS-2023JP010138

PATIENT
  Age: 7 Decade

DRUGS (2)
  1. XOSPATA [Suspect]
     Active Substance: GILTERITINIB
     Indication: Acute myeloid leukaemia
     Route: 065
     Dates: start: 20230130
  2. XOSPATA [Suspect]
     Active Substance: GILTERITINIB
     Indication: Myelodysplastic syndrome

REACTIONS (1)
  - Graft versus host disease [Recovered/Resolved]
